FAERS Safety Report 24862557 (Version 2)
Quarter: 2025Q1

REPORT INFORMATION
  Report Type: Spontaneous
  Country: US (occurrence: US)
  Receive Date: 20250120
  Receipt Date: 20250228
  Transmission Date: 20250409
  Serious: Yes (Other)
  Sender: SAMSUNG BIOEPIS
  Company Number: US-SAMSUNG BIOEPIS-SB-2025-01550

PATIENT
  Age: 57 Year
  Sex: Female

DRUGS (1)
  1. ETANERCEPT [Suspect]
     Active Substance: ETANERCEPT
     Indication: Psoriasis

REACTIONS (5)
  - Cardiac sarcoidosis [Unknown]
  - Coronary artery disease [Unknown]
  - Atrioventricular block complete [Unknown]
  - Dyspnoea [Unknown]
  - Left ventricular dysfunction [Unknown]
